FAERS Safety Report 6141941-7 (Version None)
Quarter: 2009Q2

REPORT INFORMATION
  Report Type: 
  Country: None (occurrence: None)
  Receive Date: 20090402
  Receipt Date: 20090326
  Transmission Date: 20091009
  Serious: Yes (Hospitalization)
  Sender: FDA-Public Use
  Company Number: JP-B.I. PHARMACEUTICALS,INC./RIDGEFIELD-2009-BP-03229YA

PATIENT
  Sex: Male
  Weight: 54.6 kg

DRUGS (11)
  1. TAMSULOSIN HCL [Suspect]
     Indication: BENIGN PROSTATIC HYPERPLASIA
     Route: 048
     Dates: start: 20081107, end: 20090222
  2. SOLIFENACIN [Suspect]
     Indication: HYPERTONIC BLADDER
     Route: 048
     Dates: start: 20090116, end: 20090222
  3. KUOBERIN [Suspect]
     Indication: DIARRHOEA
     Route: 048
     Dates: start: 20090212, end: 20090222
  4. RIZE (CLOTIAZEPAM) [Concomitant]
     Route: 048
     Dates: end: 20090221
  5. LANIRAPID (METILDIGOXIN) [Concomitant]
     Route: 048
     Dates: end: 20090222
  6. WARFARIN SODIUM [Concomitant]
     Route: 048
  7. PRORENAL (LIMAPROST) [Concomitant]
     Route: 048
     Dates: end: 20090222
  8. METHYCOBAL (MECOBALAMIN) [Concomitant]
     Route: 048
     Dates: end: 20090222
  9. KARY UNI (PIRENOXINE) [Concomitant]
     Route: 031
  10. MAGLAX (MAGNESIUM OXIDE) [Concomitant]
     Route: 048
     Dates: start: 20080516
  11. TENORMIN [Concomitant]
     Dates: end: 20090222

REACTIONS (1)
  - INTERSTITIAL LUNG DISEASE [None]
